FAERS Safety Report 20511285 (Version 2)
Quarter: 2022Q1

REPORT INFORMATION
  Report Type: Spontaneous
  Country: US (occurrence: US)
  Receive Date: 20220224
  Receipt Date: 20220304
  Transmission Date: 20220424
  Serious: Yes (Other)
  Sender: FDA-Public Use
  Company Number: US-GLENMARK PHARMACEUTICALS-2022GMK070795

PATIENT
  Age: 26 Year
  Sex: Male

DRUGS (1)
  1. FLUCONAZOLE [Suspect]
     Active Substance: FLUCONAZOLE
     Indication: Coccidioidomycosis
     Dosage: UNK
     Route: 065

REACTIONS (4)
  - Syncope [Unknown]
  - Toxicity to various agents [Unknown]
  - Drug level above therapeutic [Unknown]
  - Asthenia [Recovering/Resolving]
